FAERS Safety Report 9541032 (Version 1)
Quarter: 2013Q3

REPORT INFORMATION
  Report Type: Spontaneous
  Country: TR (occurrence: TR)
  Receive Date: 20130922
  Receipt Date: 20130922
  Transmission Date: 20140515
  Serious: Yes (Hospitalization)
  Sender: FDA-Public Use
  Company Number: TR-MYLANLABS-2013S1020528

PATIENT
  Age: 74 Year
  Sex: Male

DRUGS (2)
  1. METHOTREXATE [Suspect]
     Indication: PSORIASIS
     Dosage: 7.5MG PER WEEK
     Route: 065
  2. METHOTREXATE [Suspect]
     Indication: PSORIASIS
     Dosage: 20MG DAILY FOR 5 CONSECUTIVE DAYS
     Route: 065

REACTIONS (4)
  - Skin ulcer [Recovered/Resolved]
  - Toxicity to various agents [Recovered/Resolved]
  - Inappropriate schedule of drug administration [Recovered/Resolved]
  - Oral mucosa erosion [Unknown]
